FAERS Safety Report 5949807-X (Version None)
Quarter: 2008Q4

REPORT INFORMATION
  Report Type: 
  Country: None (occurrence: None)
  Receive Date: 20081022
  Receipt Date: 20080109
  Transmission Date: 20090506
  Serious: Yes (Other)
  Sender: FDA-Public Use
  Company Number: SPV1-2008-00042

PATIENT
  Age: 11 Year
  Sex: Male
  Weight: 31.7 kg

DRUGS (2)
  1. VYVANSE [Suspect]
     Indication: ATTENTION DEFICIT/HYPERACTIVITY DISORDER
     Dosage: 30 MG, 1X/DAY:QD, ORAL
     Route: 048
     Dates: start: 20080105
  2. CLONIDINE [Concomitant]

REACTIONS (2)
  - AGGRESSION [None]
  - SUICIDAL BEHAVIOUR [None]
